FAERS Safety Report 5916660-X (Version None)
Quarter: 2008Q4

REPORT INFORMATION
  Report Type: 
  Country: None (occurrence: None)
  Receive Date: 20081013
  Receipt Date: 20081003
  Transmission Date: 20090506
  Serious: Yes (Other)
  Sender: FDA-Public Use
  Company Number: FR-JNJFOC-20081001742

PATIENT
  Sex: Female

DRUGS (6)
  1. RISPERDAL [Suspect]
     Route: 065
  2. RISPERDAL [Suspect]
     Indication: DRUG USE FOR UNKNOWN INDICATION
     Route: 065
  3. NEURONTIN [Interacting]
     Route: 065
  4. NEURONTIN [Interacting]
     Indication: NEURALGIA
     Route: 065
  5. THERALENE [Interacting]
     Indication: DRUG USE FOR UNKNOWN INDICATION
     Route: 048
     Dates: start: 20080909
  6. LEXOMIL [Concomitant]
     Route: 065

REACTIONS (5)
  - AGITATION [None]
  - DRUG EFFECT DECREASED [None]
  - DRUG INTERACTION [None]
  - ERYTHEMA [None]
  - MYALGIA [None]
